FAERS Safety Report 16125611 (Version 1)
Quarter: 2019Q1

REPORT INFORMATION
  Report Type: Spontaneous
  Country: FR (occurrence: FR)
  Receive Date: 20190328
  Receipt Date: 20190328
  Transmission Date: 20190418
  Serious: Yes (Hospitalization)
  Sender: FDA-Public Use
  Company Number: FR-ROCHE-2289587

PATIENT
  Age: 65 Year
  Sex: Male
  Weight: 67.5 kg

DRUGS (1)
  1. ROACTEMRA [Suspect]
     Active Substance: TOCILIZUMAB
     Indication: SYSTEMIC INFLAMMATORY RESPONSE SYNDROME
     Route: 041
     Dates: start: 20190131, end: 20190131

REACTIONS (5)
  - Chills [Recovered/Resolved]
  - Urticaria [Recovered/Resolved]
  - Administration related reaction [Recovered/Resolved]
  - Hot flush [Recovered/Resolved]
  - Erythema [Recovered/Resolved]

NARRATIVE: CASE EVENT DATE: 20190131
